FAERS Safety Report 5466192-0 (Version None)
Quarter: 2007Q3

REPORT INFORMATION
  Report Type: 
  Country: None (occurrence: None)
  Receive Date: 20070924
  Receipt Date: 20070912
  Transmission Date: 20080115
  Serious: Yes (Other)
  Sender: FDA-Public Use
  Company Number: FR-PFIZER INC-2007075849

PATIENT
  Age: 33 Year
  Sex: Female

DRUGS (3)
  1. CYTOTEC [Suspect]
     Dates: start: 20070324, end: 20070324
  2. MIFEPRISTONE [Suspect]
     Dosage: DAILY DOSE:600MG
     Dates: start: 20070322, end: 20070322
  3. VOLTAREN [Concomitant]
     Dates: start: 20070324, end: 20070324

REACTIONS (2)
  - INDUCED ABORTION FAILED [None]
  - OFF LABEL USE [None]
